FAERS Safety Report 9303898 (Version 1)
Quarter: 2013Q2

REPORT INFORMATION
  Report Type: Spontaneous
  Country: US (occurrence: US)
  Receive Date: 20130522
  Receipt Date: 20130522
  Transmission Date: 20140414
  Serious: No
  Sender: FDA-Public Use
  Company Number: US-B.I. PHARMACEUTICALS,INC./RIDGEFIELD-2013-BI-14169BP

PATIENT
  Age: 63 Year
  Sex: Male

DRUGS (2)
  1. TRADJENTA [Suspect]
     Dosage: 5 MG
     Route: 048
     Dates: start: 201303, end: 201303
  2. METFORMIN [Concomitant]

REACTIONS (1)
  - Abdominal pain [Recovered/Resolved]
